FAERS Safety Report 5612520-2 (Version None)
Quarter: 2008Q1

REPORT INFORMATION
  Report Type: 
  Country: None (occurrence: None)
  Receive Date: 20080128
  Receipt Date: 20080115
  Transmission Date: 20080703
  Serious: Yes (Other)
  Sender: FDA-Public Use
  Company Number: 2008001676

PATIENT
  Age: 70 Year
  Sex: Male
  Weight: 131.5431 kg

DRUGS (4)
  1. VISINE EYE DROPS [Suspect]
     Indication: OCULAR HYPERAEMIA
     Dosage: 1 DROP IN EACH EYE, ONCE OPHTHALMIC
     Route: 047
     Dates: start: 20080113, end: 20080113
  2. WARFARIN SODIUM [Suspect]
     Indication: THROMBOSIS
     Dosage: TOOK HALF OF 5 MG PILL, ONCE A WEEK, ORAL
     Route: 048
  3. LIPITOR [Concomitant]
  4. WARFARIN SODIUM [Concomitant]

REACTIONS (3)
  - DRUG INEFFECTIVE [None]
  - EYE IRRITATION [None]
  - LACRIMATION INCREASED [None]
